FAERS Safety Report 23332861 (Version 3)
Quarter: 2025Q1

REPORT INFORMATION
  Report Type: Report from Study
  Country: CH (occurrence: DE)
  Receive Date: 20231222
  Receipt Date: 20250114
  Transmission Date: 20250408
  Serious: Yes (Death, Hospitalization)
  Sender: OPKO HEALTH
  Company Number: CH-OPKO PHARMACEUTICALS, LLC.-2023OPK00112

PATIENT
  Age: 64 Year
  Sex: Female
  Weight: 63 kg

DRUGS (12)
  1. CALCIFEDIOL [Suspect]
     Active Substance: CALCIFEDIOL
     Indication: Hyperparathyroidism secondary
     Dosage: 30 MCG, QD
     Route: 048
     Dates: start: 20230816, end: 20231129
  2. CALCIFEDIOL [Suspect]
     Active Substance: CALCIFEDIOL
     Indication: Vitamin D deficiency
  3. PROGRAF [Concomitant]
     Active Substance: TACROLIMUS
     Indication: Organ donor
     Dosage: 2 MG, BID
     Route: 048
     Dates: start: 1999, end: 20231128
  4. PREDINISOLONA [Concomitant]
     Indication: Organ donor
     Dosage: 8 MG, QD
     Route: 048
     Dates: start: 1999, end: 20231128
  5. RAMIPRIL [Concomitant]
     Active Substance: RAMIPRIL
     Indication: Hypertension
     Route: 048
     Dates: start: 20230718, end: 20231128
  6. TORSEMIDE [Concomitant]
     Active Substance: TORSEMIDE
     Indication: Hypertension
     Dosage: 15 MG, BID
     Route: 048
     Dates: start: 20150318, end: 20231128
  7. BISOPROLOL [Concomitant]
     Active Substance: BISOPROLOL
     Indication: Hypertension
     Dosage: 5 MG, QD
     Route: 048
     Dates: start: 20230718, end: 20231128
  8. PRAVASTATIN [Concomitant]
     Active Substance: PRAVASTATIN
     Indication: Hyperlipidaemia
     Dates: start: 20230718, end: 20231128
  9. ACIMOL [ACECLOFENAC;PARACETAMOL] [Concomitant]
     Indication: Organ donor
     Dosage: 1500 MG, QD
     Route: 048
     Dates: start: 1999, end: 20231128
  10. PANTOPRAZOLE SODIUM [Concomitant]
     Active Substance: PANTOPRAZOLE SODIUM
     Indication: Gastrointestinal disorder prophylaxis
     Route: 048
     Dates: start: 20150306, end: 20231128
  11. SPIRIVA [Concomitant]
     Active Substance: TIOTROPIUM BROMIDE MONOHYDRATE
     Indication: Chronic obstructive pulmonary disease
     Dosage: 2.5 MCG, BID
     Dates: start: 20230718, end: 20231128
  12. BECLOMETHASONE DIPROPIONATE [Concomitant]
     Active Substance: BECLOMETHASONE DIPROPIONATE
     Dates: start: 20230718, end: 20231128

REACTIONS (3)
  - COVID-19 pneumonia [Fatal]
  - Superinfection bacterial [Fatal]
  - Sepsis [Fatal]

NARRATIVE: CASE EVENT DATE: 20230101
